FAERS Safety Report 8723882 (Version 2)
Quarter: 2012Q4

REPORT INFORMATION
  Report Type: 
  Country: US (occurrence: US)
  Receive Date: 20120815
  Receipt Date: 20120829
  Transmission Date: 20130627
  Serious: No
  Sender: FDA-Public Use
  Company Number: US-PFIZER INC-2012197680

PATIENT
  Age: 69 Year
  Sex: Male
  Weight: 81.63 kg

DRUGS (3)
  1. CHANTIX [Suspect]
     Indication: SMOKING CESSATION THERAPY
     Dosage: 0.5 mg, 1x/day
     Route: 048
     Dates: start: 20120805, end: 201208
  2. CHANTIX [Suspect]
     Dosage: 0.5 mg, 2x/day
     Route: 048
     Dates: start: 201208, end: 201208
  3. AMPICILLIN [Concomitant]
     Indication: SINUSITIS
     Dosage: UNK

REACTIONS (3)
  - Pruritus [Unknown]
  - Abdominal pain [Unknown]
  - Diarrhoea [Unknown]
